FAERS Safety Report 17653883 (Version 1)
Quarter: 2020Q2

REPORT INFORMATION
  Report Type: Spontaneous
  Country: CH (occurrence: CH)
  Receive Date: 20200410
  Receipt Date: 20200410
  Transmission Date: 20200713
  Serious: Yes (Other)
  Sender: FDA-Public Use
  Company Number: CH-TEVA-2020-CH-1221153

PATIENT
  Sex: Female
  Weight: 74 kg

DRUGS (1)
  1. CO-LISINOPRIL MEPHA [Suspect]
     Active Substance: HYDROCHLOROTHIAZIDE\LISINOPRIL
     Indication: HYPERTENSION
     Route: 048
     Dates: start: 20100407

REACTIONS (3)
  - Erythema [Unknown]
  - Sensitive skin [Unknown]
  - Skin cancer [Recovering/Resolving]
